FAERS Safety Report 25051038 (Version 1)
Quarter: 2025Q1

REPORT INFORMATION
  Report Type: Spontaneous
  Country: JP (occurrence: JP)
  Receive Date: 20250307
  Receipt Date: 20250307
  Transmission Date: 20250409
  Serious: Yes (Death, Other)
  Sender: MERCK SHARP & DOHME LLC
  Company Number: JP-009507513-2259213

PATIENT
  Age: 73 Year
  Sex: Male

DRUGS (6)
  1. KEYTRUDA [Suspect]
     Active Substance: PEMBROLIZUMAB
     Indication: Lung squamous cell carcinoma stage IV
  2. NECITUMUMAB [Suspect]
     Active Substance: NECITUMUMAB
  3. CARBOPLATIN [Concomitant]
     Active Substance: CARBOPLATIN
  4. PACLITAXEL [Concomitant]
     Active Substance: PACLITAXEL
  5. CISPLATIN [Concomitant]
     Active Substance: CISPLATIN
  6. GEMCITABINE [Concomitant]
     Active Substance: GEMCITABINE

REACTIONS (2)
  - Cytokine release syndrome [Fatal]
  - Metastases to central nervous system [Unknown]
